FAERS Safety Report 12187549 (Version 1)
Quarter: 2016Q1

REPORT INFORMATION
  Report Type: Spontaneous
  Country: GB (occurrence: GB)
  Receive Date: 20160317
  Receipt Date: 20160317
  Transmission Date: 20160526
  Serious: Yes (Hospitalization, Other)
  Sender: FDA-Public Use
  Company Number: GB-PFIZER INC-2016154454

PATIENT
  Age: 87 Year
  Sex: Female
  Weight: 54 kg

DRUGS (16)
  1. GABAPENTIN. [Suspect]
     Active Substance: GABAPENTIN
     Dosage: 400 MG, 1X/DAY
     Dates: start: 201511
  2. OMEPRAZOLE. [Concomitant]
     Active Substance: OMEPRAZOLE
     Dosage: 2 DF, 1X/DAY
     Dates: start: 20150605
  3. SOLIFENACIN [Concomitant]
     Active Substance: SOLIFENACIN
     Dosage: 1 DF, 1X/DAY
     Dates: start: 20150820
  4. AMITRIPTYLINE HYDROCHLORIDE. [Concomitant]
     Active Substance: AMITRIPTYLINE HYDROCHLORIDE
     Dosage: 1 DF, 1X/DAY
     Dates: start: 20160301
  5. PARACETAMOL [Concomitant]
     Active Substance: ACETAMINOPHEN
     Dosage: 1 OR 2, FOUR TIMES A DAY
     Dates: start: 20150605
  6. SALBUTAMOL [Concomitant]
     Active Substance: ALBUTEROL
     Dosage: 1-2 PUFFS UP TO THREE/FOUR TIMES A DAY
     Route: 055
     Dates: start: 20150605
  7. GABAPENTIN. [Suspect]
     Active Substance: GABAPENTIN
     Dosage: 300 MG, 1X/DAY
     Dates: start: 20151027, end: 201511
  8. CYCLIZINE [Concomitant]
     Active Substance: CYCLIZINE
     Dosage: ONE 3 TIMES DAILY WHEN NEEDED
     Dates: start: 20160202, end: 20160212
  9. FERROUS FUMARATE [Concomitant]
     Active Substance: FERROUS FUMARATE
     Dosage: 2 DF, DAILY
     Dates: start: 20160301
  10. TRAMADOL. [Concomitant]
     Active Substance: TRAMADOL
     Dosage: ONE OR TWO FOUR TIMES A DAY WHEN REQUIRED
     Dates: start: 20151125
  11. ALGESAL /00002701/ [Concomitant]
     Active Substance: ASPIRIN
     Dosage: APPLY AS NEEDED TO BE TAKEN THREE TIMES DAILY
     Dates: start: 20151125
  12. ZEROBASE /00103901/ [Concomitant]
     Dosage: USE AS DIRECTED
     Dates: start: 20150605
  13. ACCRETE D3 [Concomitant]
     Dosage: 2 DF, DAILY
     Dates: start: 20150605
  14. ICAPS /07499601/ [Concomitant]
     Dosage: EVERY DAY
     Dates: start: 20150605
  15. SPIRIVA [Concomitant]
     Active Substance: TIOTROPIUM BROMIDE MONOHYDRATE
     Dosage: 1 DF, 1X/DAY
     Route: 055
     Dates: start: 20150605
  16. QVAR [Concomitant]
     Active Substance: BECLOMETHASONE DIPROPIONATE
     Dosage: 1 DF, 2X/DAY
     Route: 055
     Dates: start: 20150605

REACTIONS (2)
  - Pancreatitis acute [Recovered/Resolved with Sequelae]
  - Pancreatic pseudocyst [Unknown]

NARRATIVE: CASE EVENT DATE: 20151111
